FAERS Safety Report 8304181-9 (Version None)
Quarter: 2012Q2

REPORT INFORMATION
  Report Type: 
  Country: None (occurrence: None)
  Receive Date: 20120423
  Receipt Date: 20120418
  Transmission Date: 20120825
  Serious: Yes (Death)
  Sender: FDA-Public Use
  Company Number: ES-SANOFI-AVENTIS-2012SA027844

PATIENT
  Age: 69 Year
  Sex: Female

DRUGS (6)
  1. OXALIPLATIN [Suspect]
     Dosage: ON DAY 1, 6 CYCLES
     Route: 065
  2. CAPECITABINE [Suspect]
     Dosage: ON DAYS 1-14 EVERY 3 WEEKS, TOTAL 6 CYCLES
     Route: 065
  3. CAPECITABINE [Suspect]
     Dosage: ON DAYS 1-14, EVERY 3 WEEKS
     Route: 065
  4. BEVACIZUMAB [Suspect]
     Route: 065
  5. OXALIPLATIN [Suspect]
     Route: 065
  6. BEVACIZUMAB [Suspect]
     Dosage: ON DAY 1, TOTAL 6 CYCLES
     Route: 065

REACTIONS (1)
  - GASTROINTESTINAL PERFORATION [None]
